FAERS Safety Report 20240348 (Version 1)
Quarter: 2021Q4

REPORT INFORMATION
  Report Type: Spontaneous
  Country: US (occurrence: None)
  Receive Date: 20211227
  Receipt Date: 20211227
  Transmission Date: 20220304
  Serious: No
  Sender: FDA-Public Use
  Company Number: None

PATIENT
  Age: 33 Year
  Sex: Female

DRUGS (4)
  1. DOXYCYCLINE HYCLATE [Suspect]
     Active Substance: DOXYCYCLINE HYCLATE
     Indication: Human anaplasmosis
     Dosage: FREQUENCY : EVERY 12 HOURS;?
     Route: 042
     Dates: start: 20211210
  2. ATARAX [Suspect]
     Active Substance: HYDROXYZINE HYDROCHLORIDE
  3. BACLOFEN [Concomitant]
     Active Substance: BACLOFEN
  4. KETAMINE [Concomitant]
     Active Substance: KETAMINE

REACTIONS (6)
  - Rash [None]
  - Urticaria [None]
  - Lip swelling [None]
  - Paraesthesia [None]
  - Burning sensation [None]
  - Paraesthesia oral [None]

NARRATIVE: CASE EVENT DATE: 20211223
